FAERS Safety Report 8032623-5 (Version None)
Quarter: 2012Q1

REPORT INFORMATION
  Report Type: 
  Country: None (occurrence: None)
  Receive Date: 20120110
  Receipt Date: 20110421
  Transmission Date: 20120608
  Serious: No
  Sender: FDA-Public Use
  Company Number: US-COVIDIEN/TYCO HEALTHCARE/MALLINCKRODT-T201100831

PATIENT
  Sex: Male

DRUGS (4)
  1. ALBUTEROL [Concomitant]
  2. ADVAIR DISKUS 100/50 [Concomitant]
  3. LEVITRA [Concomitant]
  4. OPTIRAY 320 [Suspect]
     Indication: UROGRAM
     Dosage: 120 ML, SINGLE
     Route: 042
     Dates: start: 20110418, end: 20110418

REACTIONS (3)
  - URTICARIA [None]
  - LIP SWELLING [None]
  - THROAT IRRITATION [None]
